FAERS Safety Report 4339745-0 (Version None)
Quarter: 2004Q2

REPORT INFORMATION
  Report Type: 
  Country: None (occurrence: None)
  Receive Date: 20040416
  Receipt Date: 20030929
  Transmission Date: 20050107
  Serious: Yes (Death)
  Sender: FDA-Public Use
  Company Number: 200318571US

PATIENT
  Sex: Male
  Weight: 80 kg

DRUGS (12)
  1. DOCETAXEL [Suspect]
     Indication: PROSTATE CANCER
     Route: 042
     Dates: start: 20030618, end: 20030924
  2. ZESTRIL [Concomitant]
     Indication: HYPERTENSION
     Dosage: DOSE: UNK
  3. COMPAZINE [Concomitant]
     Indication: NAUSEA
     Dosage: DOSE: UNK
     Dates: start: 20030618
  4. BACLOFEN [Concomitant]
     Indication: NAUSEA
     Dosage: DOSE: UNK
  5. CHLORPROMAZINE [Concomitant]
     Dosage: DOSE: UNK
     Dates: start: 20030618
  6. OXYCODONE [Concomitant]
     Dosage: DOSE: UNK
  7. DEXAMETHASONE [Concomitant]
     Dates: start: 20030618
  8. THORAZINE [Concomitant]
     Indication: ABDOMINAL DISTENSION
     Route: 048
     Dates: start: 20030901, end: 20030926
  9. GAS-X [Concomitant]
     Indication: ABDOMINAL DISTENSION
     Route: 048
     Dates: start: 20030901, end: 20030926
  10. VIAGRA [Concomitant]
  11. SENEKOT S [Concomitant]
     Indication: CONSTIPATION
     Route: 048
     Dates: start: 20030926, end: 20030926
  12. MILK OF MAGNESIA TAB [Concomitant]
     Indication: CONSTIPATION
     Dosage: DOSE UNIT: TABLESPOON
     Dates: start: 20030926, end: 20030926

REACTIONS (14)
  - ABDOMINAL DISTENSION [None]
  - ABDOMINAL PAIN [None]
  - APNOEA [None]
  - CIRCULATORY COLLAPSE [None]
  - CONSTIPATION [None]
  - DYSPNOEA [None]
  - FAECES DISCOLOURED [None]
  - FATIGUE [None]
  - FEELING ABNORMAL [None]
  - GASTROINTESTINAL DISORDER [None]
  - HAEMATEMESIS [None]
  - NAUSEA [None]
  - PULSE ABSENT [None]
  - SUDDEN DEATH [None]
